FAERS Safety Report 18843989 (Version 1)
Quarter: 2021Q1

REPORT INFORMATION
  Report Type: Report from Study
  Country: US (occurrence: US)
  Receive Date: 20210203
  Receipt Date: 20210203
  Transmission Date: 20210419
  Serious: No
  Sender: FDA-Public Use
  Company Number: US-EXELIXIS-CABO-20027204

PATIENT
  Sex: Male

DRUGS (11)
  1. SODIUM BICARBONATE. [Concomitant]
     Active Substance: SODIUM BICARBONATE
  2. KEPPRA [Concomitant]
     Active Substance: LEVETIRACETAM
  3. OMEPRAZOLE. [Concomitant]
     Active Substance: OMEPRAZOLE
  4. LEVOTHYROXINE SODIUM. [Concomitant]
     Active Substance: LEVOTHYROXINE SODIUM
  5. TRAMADOL HCL [Concomitant]
     Active Substance: TRAMADOL HYDROCHLORIDE
  6. CABOMETYX [Suspect]
     Active Substance: CABOZANTINIB S-MALATE
     Indication: RENAL CANCER
     Dosage: 60 MG, QD
     Route: 048
     Dates: start: 20200110
  7. DECADRON [Concomitant]
     Active Substance: DEXAMETHASONE
  8. ASPIRIN. [Concomitant]
     Active Substance: ASPIRIN
  9. FERROUS SULFATE. [Concomitant]
     Active Substance: FERROUS SULFATE
  10. TYLENOL [Concomitant]
     Active Substance: ACETAMINOPHEN
  11. CALCIUM CARBONATE. [Concomitant]
     Active Substance: CALCIUM CARBONATE

REACTIONS (4)
  - Blister [Unknown]
  - Epistaxis [Unknown]
  - Dysgeusia [Unknown]
  - Decreased appetite [Unknown]
